FAERS Safety Report 9373339 (Version 2)
Quarter: 2013Q3

REPORT INFORMATION
  Report Type: Report from Study
  Country: US (occurrence: US)
  Receive Date: 20130627
  Receipt Date: 20130722
  Transmission Date: 20140515
  Serious: Yes (Hospitalization)
  Sender: FDA-Public Use
  Company Number: US-ACTELION-A-US2012-75577

PATIENT
  Age: 37 Year
  Sex: Female

DRUGS (3)
  1. TRACLEER [Suspect]
     Indication: PULMONARY ARTERIAL HYPERTENSION
     Dosage: UNK
     Route: 048
  2. TRACLEER [Suspect]
     Dosage: UNK
     Route: 048
  3. SILDENAFIL [Concomitant]

REACTIONS (5)
  - Cough [Recovering/Resolving]
  - Syncope [Recovering/Resolving]
  - Dyspnoea exertional [Unknown]
  - Nasopharyngitis [Unknown]
  - Dyspnoea [Unknown]
